FAERS Safety Report 9673556 (Version 3)
Quarter: 2014Q2

REPORT INFORMATION
  Report Type: Spontaneous
  Country: US (occurrence: US)
  Receive Date: 20131106
  Receipt Date: 20140506
  Transmission Date: 20141212
  Serious: Yes (Other)
  Sender: FDA-Public Use
  Company Number: US-AMGEN-USASP2013074135

PATIENT
  Age: 68 Year
  Sex: Female
  Weight: 104.76 kg

DRUGS (18)
  1. ENBREL [Suspect]
     Indication: RHEUMATOID ARTHRITIS
     Dosage: 50 MG, QWK
     Route: 058
     Dates: start: 20131005, end: 201401
  2. ENBREL [Suspect]
     Dosage: UNK
     Route: 065
  3. ASPIRIN [Concomitant]
     Dosage: 325 MG 1 TABLET, QD
     Route: 048
  4. BETAMETHASONE VALERATE [Concomitant]
     Dosage: 0.1 %, BID
     Route: 061
  5. CITRACAL + D                       /01438101/ [Concomitant]
     Dosage: 315 MG-250 UNIT TABLET, QD
     Route: 048
  6. FLAXSEED OIL [Concomitant]
     Dosage: 1000 MG 1 CAPSULE, QD
     Route: 048
  7. GLUCOPHAGE [Concomitant]
     Dosage: 500 MG, 2 TABLETS BY MOUTH 2 TIMES PER DAY
     Route: 048
  8. IMODIUM A-D [Concomitant]
     Dosage: 2 MG, 1 TABLET BY MOUTH QD PRN
     Route: 048
  9. LOTREL [Concomitant]
     Dosage: 5MG - 40MG, QD
     Route: 048
  10. LUTEIN                             /01638501/ [Concomitant]
     Dosage: 20 MG, 1 CAP(S) QD
     Route: 048
  11. MAGNESIUM OXIDE [Concomitant]
     Dosage: 400 MG, QD PRN
     Route: 048
  12. NOVOLOG [Concomitant]
     Dosage: 100 UNIT/ML
     Route: 058
  13. RITUXAN [Concomitant]
     Dosage: 10 MG/ML, ONCE EVERY SIX MONTHS
     Route: 042
  14. SYNTHROID [Concomitant]
     Dosage: 175 MUG, QD
     Route: 048
  15. TOPROL [Concomitant]
     Dosage: 100 MG, 1 TABLET QD
     Route: 048
  16. TRAMADOL [Concomitant]
     Dosage: 50 MG, 1 TABLET TID PRN
     Route: 048
  17. VITAMIN D3 [Concomitant]
     Dosage: 1000 UNIT, QD
     Route: 048
  18. WELCHOL [Concomitant]
     Dosage: 625 MG, 1 TABLET BID
     Route: 048

REACTIONS (44)
  - Non-alcoholic steatohepatitis [Unknown]
  - Deafness [Unknown]
  - Diabetes mellitus [Unknown]
  - Staphylococcal infection [Recovered/Resolved]
  - Cellulitis [Recovering/Resolving]
  - Animal scratch [Unknown]
  - Therapeutic response decreased [Not Recovered/Not Resolved]
  - Haemorrhage [Not Recovered/Not Resolved]
  - Pain [Not Recovered/Not Resolved]
  - Pruritus [Unknown]
  - Joint swelling [Unknown]
  - Fatigue [Unknown]
  - Dry mouth [Unknown]
  - Stomatitis [Unknown]
  - Nasal discomfort [Unknown]
  - Dyspnoea [Unknown]
  - Cough [Unknown]
  - Oedema [Unknown]
  - Breast tenderness [Unknown]
  - Abdominal pain [Unknown]
  - Neck pain [Unknown]
  - Back pain [Unknown]
  - Myalgia [Unknown]
  - Headache [Unknown]
  - Hypoaesthesia [Unknown]
  - Insomnia [Unknown]
  - Anxiety [Unknown]
  - Depressed mood [Unknown]
  - Temperature intolerance [Unknown]
  - Synovitis [Recovered/Resolved]
  - Erythema [Unknown]
  - Vision blurred [Unknown]
  - Nasal congestion [Unknown]
  - Joint crepitation [Unknown]
  - Local swelling [Unknown]
  - Rash [Recovering/Resolving]
  - Chest pain [Unknown]
  - Paraesthesia [Unknown]
  - Infection [Unknown]
  - Injection site reaction [Recovered/Resolved]
  - Injection site pruritus [Not Recovered/Not Resolved]
  - Injection site swelling [Not Recovered/Not Resolved]
  - Injection site warmth [Not Recovered/Not Resolved]
  - Injection site erythema [Not Recovered/Not Resolved]
